FAERS Safety Report 5038749-2 (Version None)
Quarter: 2006Q2

REPORT INFORMATION
  Report Type: 
  Country: None (occurrence: None)
  Receive Date: 20060629
  Receipt Date: 20050920
  Transmission Date: 20061013
  Serious: Yes (Hospitalization)
  Sender: FDA-Public Use
  Company Number: PHHO2005GB15278

PATIENT
  Age: 26 Year
  Sex: Female

DRUGS (5)
  1. SYNTOCINON [Suspect]
     Indication: LABOUR INDUCTION
     Dosage: 10 IU IN 500 MLS SALINE
     Route: 042
     Dates: start: 20050912, end: 20050913
  2. MISOPROSTOL [Concomitant]
     Dosage: 25 UG
     Route: 067
     Dates: start: 20050911, end: 20050911
  3. MISOPROSTOL [Concomitant]
     Dosage: 25 UG
     Route: 067
     Dates: start: 20050911, end: 20050911
  4. MISOPROSTOL [Concomitant]
     Dosage: 25 UG
     Route: 067
     Dates: start: 20050911, end: 20050911
  5. DINOPROSTONE [Concomitant]
     Dosage: 2 MG

REACTIONS (7)
  - ARTIFICIAL RUPTURE OF MEMBRANES [None]
  - CAESAREAN SECTION [None]
  - DRUG EXPOSURE DURING PREGNANCY [None]
  - FAILED INDUCTION OF LABOUR [None]
  - LABOUR COMPLICATION [None]
  - UTERINE CONTRACTIONS ABNORMAL [None]
  - UTERINE HYPERTONUS [None]
